FAERS Safety Report 6229421-1 (Version None)
Quarter: 2009Q2

REPORT INFORMATION
  Report Type: 
  Country: None (occurrence: None)
  Receive Date: 20090615
  Receipt Date: 20090604
  Transmission Date: 20091009
  Serious: Yes (Hospitalization, Congenital Anomaly)
  Sender: FDA-Public Use
  Company Number: A0680938A

PATIENT
  Sex: Male
  Weight: 3.1 kg

DRUGS (5)
  1. PAXIL [Suspect]
     Indication: BIPOLAR DISORDER
     Dates: start: 19990101, end: 20020101
  2. VITAMIN TAB [Concomitant]
  3. CELEXA [Concomitant]
     Dates: start: 20011201, end: 20020101
  4. KLONOPIN [Concomitant]
     Dates: end: 20020101
  5. DEPAKOTE [Concomitant]
     Dates: end: 20020101

REACTIONS (2)
  - COARCTATION OF THE AORTA [None]
  - DRUG EXPOSURE DURING PREGNANCY [None]
